FAERS Safety Report 6888463-3 (Version None)
Quarter: 2010Q3

REPORT INFORMATION
  Report Type: 
  Country: None (occurrence: None)
  Receive Date: 20100730
  Receipt Date: 20100610
  Transmission Date: 20110219
  Serious: Yes (Other)
  Sender: FDA-Public Use
  Company Number: PL-PURDUE-DEU-2009-0005321

PATIENT
  Sex: Female
  Weight: 100 kg

DRUGS (12)
  1. OXY CR TAB [Suspect]
     Indication: CANCER PAIN
     Dosage: 40 MG, DAILY
     Dates: start: 20090616, end: 20090616
  2. OXY CR TAB [Suspect]
     Dosage: 80 MG, DAILY
     Dates: start: 20090610, end: 20090615
  3. OXY CR TAB [Suspect]
     Dosage: 60 MG, DAILY
     Dates: start: 20090609, end: 20090609
  4. OXY CR TAB [Suspect]
     Dosage: 40 MG, DAILY
     Dates: start: 20090606, end: 20090608
  5. OXY CR TAB [Suspect]
     Dosage: 20 MG, DAILY
     Route: 048
     Dates: start: 20090605, end: 20090605
  6. ATENDOL [Concomitant]
  7. MANIT [Concomitant]
  8. KETONAL                            /00321701/ [Concomitant]
  9. DEXAMETHASONE [Concomitant]
  10. TAMOXIFEN CITRATE [Concomitant]
  11. HORMONES [Concomitant]
  12. BISACODYL [Concomitant]

REACTIONS (2)
  - ALANINE AMINOTRANSFERASE INCREASED [None]
  - ASPARTATE AMINOTRANSFERASE INCREASED [None]
